FAERS Safety Report 7496501-2 (Version None)
Quarter: 2011Q2

REPORT INFORMATION
  Report Type: 
  Country: None (occurrence: None)
  Receive Date: 20110523
  Receipt Date: 20110516
  Transmission Date: 20111010
  Serious: Yes (Other)
  Sender: FDA-Public Use
  Company Number: GR-ROCHE-777625

PATIENT
  Sex: Female

DRUGS (2)
  1. HERCEPTIN [Suspect]
     Indication: NEOPLASM PROPHYLAXIS
     Route: 042
     Dates: start: 20101001, end: 20110308
  2. HERCEPTIN [Suspect]
     Route: 042
     Dates: start: 20110420

REACTIONS (4)
  - ANAEMIA [None]
  - LEUKOPENIA [None]
  - IMPAIRED HEALING [None]
  - CONJUNCTIVITIS [None]
